FAERS Safety Report 6287735-3 (Version None)
Quarter: 2009Q3

REPORT INFORMATION
  Report Type: 
  Country: None (occurrence: None)
  Receive Date: 20090727
  Receipt Date: 20090727
  Transmission Date: 20100115
  Serious: Yes (Other)
  Sender: FDA-Public Use
  Company Number: None

PATIENT
  Age: 42 Year
  Sex: Female
  Weight: 88.4514 kg

DRUGS (4)
  1. LYRICA [Suspect]
     Indication: FIBROMYALGIA
     Dosage: 75MG CAPSULES 4 TIMES A DAY PO
     Route: 048
     Dates: start: 20040201, end: 20090707
  2. LYRICA [Suspect]
     Indication: MIXED CONNECTIVE TISSUE DISEASE
     Dosage: 75MG CAPSULES 4 TIMES A DAY PO
     Route: 048
     Dates: start: 20040201, end: 20090707
  3. LYRICA [Suspect]
     Indication: NEUROPATHY PERIPHERAL
     Dosage: 75MG CAPSULES 4 TIMES A DAY PO
     Route: 048
     Dates: start: 20040201, end: 20090707
  4. LYRICA [Suspect]
     Indication: SYSTEMIC LUPUS ERYTHEMATOSUS
     Dosage: 75MG CAPSULES 4 TIMES A DAY PO
     Route: 048
     Dates: start: 20040201, end: 20090707

REACTIONS (9)
  - ANXIETY [None]
  - ASTHENIA [None]
  - BEDRIDDEN [None]
  - CONDITION AGGRAVATED [None]
  - DEPRESSION [None]
  - DERMATITIS DIAPER [None]
  - INCONTINENCE [None]
  - PAIN [None]
  - WEIGHT INCREASED [None]
